FAERS Safety Report 21404593 (Version 1)
Quarter: 2022Q4

REPORT INFORMATION
  Report Type: Spontaneous
  Country: None (occurrence: US)
  Receive Date: 20221003
  Receipt Date: 20221003
  Transmission Date: 20230113
  Serious: No
  Sender: FDA-Public Use
  Company Number: US-Mission Pharmacal Company-2133431

PATIENT
  Age: 77 Year
  Sex: Male

DRUGS (3)
  1. THIOLA EC [Suspect]
     Active Substance: TIOPRONIN
     Indication: Cystinuria
     Route: 048
     Dates: start: 20220827
  2. TAMSULOSIN [Concomitant]
     Active Substance: TAMSULOSIN
  3. THERALITH [Concomitant]

REACTIONS (1)
  - Taste disorder [Unknown]
